FAERS Safety Report 25038698 (Version 2)
Quarter: 2025Q4

REPORT INFORMATION
  Report Type: Spontaneous
  Country: US (occurrence: US)
  Receive Date: 20250304
  Receipt Date: 20251010
  Transmission Date: 20260118
  Serious: Yes (Hospitalization, Other)
  Sender: NOVO NORDISK
  Company Number: US-NOVOPROD-1377915

PATIENT
  Age: 64 Year
  Sex: Male
  Weight: 86.168 kg

DRUGS (6)
  1. OZEMPIC [Suspect]
     Active Substance: SEMAGLUTIDE
     Indication: Type 2 diabetes mellitus
     Dosage: 0.25 MG, QD
     Dates: start: 20210101, end: 20240706
  2. COLCHICINE [Concomitant]
     Active Substance: COLCHICINE
     Indication: Antiinflammatory therapy
     Dosage: UNK
     Dates: start: 20230224, end: 20230324
  3. OXAPROZIN [Concomitant]
     Active Substance: OXAPROZIN
     Indication: Antiinflammatory therapy
     Dosage: UNK
     Dates: start: 20230313, end: 20230512
  4. PHENAZOPYRIDINE [Concomitant]
     Active Substance: PHENAZOPYRIDINE
     Indication: Infection
     Dosage: UNK
     Dates: start: 20230620, end: 20230623
  5. ATORVASTATIN [Concomitant]
     Active Substance: ATORVASTATIN
     Indication: Blood cholesterol increased
     Dosage: UNK
     Dates: start: 20240106, end: 20240406
  6. HYDROCHLOROTHIAZIDE [Concomitant]
     Active Substance: HYDROCHLOROTHIAZIDE
     Indication: Hypertension
     Dosage: UNK
     Dates: start: 20240430, end: 20240730

REACTIONS (4)
  - Cholecystitis [Not Recovered/Not Resolved]
  - Intestinal obstruction [Recovered/Resolved]
  - Cholelithiasis [Recovered/Resolved]
  - Off label use [Unknown]

NARRATIVE: CASE EVENT DATE: 20210101
